FAERS Safety Report 8840677 (Version 1)
Quarter: 2012Q4

REPORT INFORMATION
  Report Type: 
  Country: DK (occurrence: CA)
  Receive Date: 20121015
  Receipt Date: 20121015
  Transmission Date: 20130627
  Serious: Yes (Other)
  Sender: FDA-Public Use
  Company Number: CA-FRI-1000039421

PATIENT
  Sex: Male

DRUGS (2)
  1. ESCITALOPRAM [Suspect]
     Dates: start: 201104
  2. WATER PILL [Concomitant]
     Indication: OEDEMA PERIPHERAL

REACTIONS (2)
  - Myocardial infarction [Unknown]
  - Vascular graft [Unknown]
